FAERS Safety Report 23657002 (Version 1)
Quarter: 2024Q1

REPORT INFORMATION
  Report Type: Report from Study
  Country: RO (occurrence: RO)
  Receive Date: 20240321
  Receipt Date: 20240321
  Transmission Date: 20240410
  Serious: Yes (Death, Disabling, Other)
  Sender: FDA-Public Use
  Company Number: RO-ABBVIE-5674704

PATIENT
  Age: 55 Year
  Sex: Male
  Weight: 60 kg

DRUGS (2)
  1. EPCORITAMAB [Suspect]
     Active Substance: EPCORITAMAB
     Indication: Diffuse large B-cell lymphoma
     Dosage: 48 MILLIGRAM, WEEKLY
     Route: 058
     Dates: start: 20231002, end: 20240107
  2. ENTECAVIR [Concomitant]
     Active Substance: ENTECAVIR
     Indication: Hepatitis B
     Dosage: 0.5 MILLIGRAM
     Dates: start: 20201201

REACTIONS (22)
  - Death [Fatal]
  - Cytomegalovirus infection reactivation [Recovered/Resolved]
  - Erectile dysfunction [Unknown]
  - Movement disorder [Unknown]
  - Bedridden [Unknown]
  - Chest pain [Unknown]
  - Pleurisy [Not Recovered/Not Resolved]
  - Spinal pain [Unknown]
  - Neck pain [Unknown]
  - Cellulitis [Not Recovered/Not Resolved]
  - Sepsis [Fatal]
  - Chest pain [Unknown]
  - Cellulitis [Unknown]
  - Kidney enlargement [Unknown]
  - General physical health deterioration [Unknown]
  - Constipation [Unknown]
  - Retroperitoneal fibrosis [Unknown]
  - Fat tissue increased [Unknown]
  - Pleurisy [Unknown]
  - Pallor [Unknown]
  - Pyrexia [Unknown]
  - Pleurisy [Unknown]

NARRATIVE: CASE EVENT DATE: 20231210
